FAERS Safety Report 4343504-2 (Version None)
Quarter: 2004Q2

REPORT INFORMATION
  Report Type: 
  Country: None (occurrence: None)
  Receive Date: 20040419
  Receipt Date: 20040405
  Transmission Date: 20050107
  Serious: Yes (Hospitalization)
  Sender: FDA-Public Use
  Company Number: HQWYE604910APR03

PATIENT
  Sex: Male

DRUGS (1)
  1. PREMARIN [Suspect]
     Indication: OESTROGEN REPLACEMENT THERAPY
     Dosage: 1.25 ORAL
     Route: 048
     Dates: start: 19800101, end: 20020828

REACTIONS (5)
  - ARTERIAL THROMBOSIS LIMB [None]
  - INSOMNIA [None]
  - NERVOUSNESS [None]
  - PAIN [None]
  - SPLEEN DISORDER [None]
